APPROVED DRUG PRODUCT: SUBLOCADE
Active Ingredient: BUPRENORPHINE
Strength: 100MG/0.5ML (100MG/0.5ML)
Dosage Form/Route: SOLUTION, EXTENDED RELEASE;SUBCUTANEOUS
Application: N209819 | Product #001
Applicant: INDIVIOR INC
Approved: Nov 30, 2017 | RLD: Yes | RS: No | Type: RX

PATENTS:
Patent 9827241 | Expires: Jun 6, 2031
Patent 9827241 | Expires: Jun 6, 2031
Patent 9827241 | Expires: Jun 6, 2031
Patent 9827241 | Expires: Jun 6, 2031
Patent 9782402 | Expires: Jun 6, 2031
Patent 9782402 | Expires: Jun 6, 2031
Patent 9782402 | Expires: Jun 6, 2031
Patent 9272044 | Expires: Jun 6, 2031
Patent 9272044 | Expires: Jun 6, 2031
Patent 9272044 | Expires: Jun 6, 2031
Patent 8975270 | Expires: Sep 5, 2031
Patent 8921387 | Expires: Jan 6, 2032
Patent 10198218 | Expires: Jun 6, 2031
Patent 8921387 | Expires: Jan 6, 2032
Patent 8975270 | Expires: Sep 5, 2031
Patent 9272044 | Expires: Jun 6, 2031
Patent 9498432 | Expires: Jun 6, 2031
Patent 9782402 | Expires: Jun 6, 2031
Patent 9827241 | Expires: Jun 6, 2031
Patent 10592168 | Expires: Jun 6, 2031
Patent 11000520 | Expires: Nov 6, 2035
Patent 11839611 | Expires: Nov 6, 2035
Patent 10558394 | Expires: Jun 25, 2031

EXCLUSIVITY:
Code: M-314 | Date: Feb 21, 2028